FAERS Safety Report 8373281-X (Version None)
Quarter: 2012Q2

REPORT INFORMATION
  Report Type: 
  Country: None (occurrence: None)
  Receive Date: 20120521
  Receipt Date: 20110420
  Transmission Date: 20120825
  Serious: No
  Sender: FDA-Public Use
  Company Number: US-TEVA-2011000963

PATIENT
  Age: 71 Year
  Sex: Male
  Weight: 90.8 kg

DRUGS (1)
  1. TREANDA [Suspect]
     Indication: NON-HODGKIN'S LYMPHOMA
     Route: 042

REACTIONS (1)
  - INFUSION SITE INDURATION [None]
